FAERS Safety Report 9395158 (Version 1)
Quarter: 2013Q3

REPORT INFORMATION
  Report Type: Spontaneous
  Country: GB (occurrence: None)
  Receive Date: 20130705
  Receipt Date: 20130705
  Transmission Date: 20140515
  Serious: Yes (Other)
  Sender: FDA-Public Use
  Company Number: AUR-APL-2013-05459

PATIENT
  Age: 79 Year
  Sex: Female
  Weight: 74.8 kg

DRUGS (6)
  1. DONEPEZIL (DONEPEZIL) [Suspect]
     Indication: PRODUCT USED FOR UNKNOWN INDICATION
  2. BROMFENAC (BROMFENAC) [Concomitant]
  3. DORZOLAMIDE (DORZOLAMIDE) [Concomitant]
  4. FELODIPINE (FELODIPINE) [Concomitant]
  5. SIMVASTATIN (SIMVASTATIN) [Concomitant]
  6. VALSARTAN (VALSARTAN) [Concomitant]

REACTIONS (1)
  - Delusion [None]
